FAERS Safety Report 23080593 (Version 8)
Quarter: 2025Q1

REPORT INFORMATION
  Report Type: Spontaneous
  Country: US (occurrence: US)
  Receive Date: 20231018
  Receipt Date: 20250106
  Transmission Date: 20250408
  Serious: Yes (Hospitalization, Other)
  Sender: PFIZER
  Company Number: US-PFIZER INC-PV202300170956

PATIENT
  Age: 74 Year
  Sex: Female
  Weight: 65.76 kg

DRUGS (3)
  1. TIKOSYN [Suspect]
     Active Substance: DOFETILIDE
     Indication: Heart rate increased
     Dosage: 250 MG, 2X/DAY
     Dates: start: 20230921
  2. TIKOSYN [Suspect]
     Active Substance: DOFETILIDE
     Indication: Atrial fibrillation
  3. METOPROLOL [Concomitant]
     Active Substance: METOPROLOL
     Dates: start: 2021

REACTIONS (4)
  - Hip fracture [Unknown]
  - Heart rate irregular [Unknown]
  - Fall [Unknown]
  - Product prescribing error [Unknown]

NARRATIVE: CASE EVENT DATE: 20230101
